FAERS Safety Report 7265154-0 (Version None)
Quarter: 2011Q1

REPORT INFORMATION
  Report Type: 
  Country: None (occurrence: None)
  Receive Date: 20110131
  Receipt Date: 20110127
  Transmission Date: 20110831
  Serious: Yes (Death)
  Sender: FDA-Public Use
  Company Number: PHHY2011BR04914

PATIENT
  Sex: Female
  Weight: 62 kg

DRUGS (6)
  1. ACETYLSALICYLIC ACID SRT [Concomitant]
     Indication: PARAESTHESIA
  2. METFORMIN [Concomitant]
     Indication: HYPERTENSION
  3. DIOVAN [Suspect]
     Indication: DIABETES MELLITUS
     Dosage: 1 DF, BID
  4. METFORMIN [Concomitant]
     Indication: BLOOD CHOLESTEROL
     Dosage: 1 DF, QD
     Route: 048
  5. ACETYLSALICYLIC ACID SRT [Concomitant]
     Indication: HYPERTENSION
     Dosage: 1 DF, QD (1 TABLET AFTER LUNCH)
     Route: 048
  6. SYNTHROID [Concomitant]
     Indication: THYROID DISORDER
     Dosage: 1 DF, QD (1 TABLET FASTING IN THE MORNING)
     Route: 048

REACTIONS (3)
  - DIABETES MELLITUS [None]
  - BLOOD CHOLESTEROL INCREASED [None]
  - HYPERTENSION [None]
